FAERS Safety Report 7634691-9 (Version None)
Quarter: 2011Q3

REPORT INFORMATION
  Report Type: 
  Country: None (occurrence: None)
  Receive Date: 20110725
  Receipt Date: 20091120
  Transmission Date: 20111222
  Serious: Yes (Hospitalization, Other)
  Sender: FDA-Public Use
  Company Number: US-BAYER-200940897NA

PATIENT
  Age: 49 Year
  Sex: Female
  Weight: 87.528 kg

DRUGS (14)
  1. ALBUMIN (HUMAN) [Concomitant]
     Dosage: 2 UNITS
     Route: 042
     Dates: start: 20040421, end: 20040421
  2. FENTANYL [Concomitant]
     Dosage: 20MCG
     Route: 042
     Dates: start: 20040421, end: 20040421
  3. TRASYLOL [Suspect]
     Indication: PRODUCT USED FOR UNKNOWN INDICATION
     Dosage: 200ML PUMP PRIME
     Dates: start: 20040421, end: 20040421
  4. TRASYLOL [Suspect]
     Dosage: 100ML, INFUSION RATE ILLEGIBLE
  5. PROTAMINE SULFATE [Concomitant]
     Dosage: UNK
     Route: 042
     Dates: start: 20040421, end: 20040421
  6. ACETYLSALICYLIC ACID SRT [Concomitant]
     Dosage: 325MG
     Route: 048
  7. MANNITOL [Concomitant]
     Dosage: 12.5GM
     Route: 042
     Dates: start: 20040421, end: 20040421
  8. CARDIOPLEGIA [Concomitant]
     Dosage: 500CC
     Route: 042
     Dates: start: 20040421, end: 20040421
  9. PLASMALYTE [GLUCOSE,POTASSIUM CHLORIDE] [Concomitant]
     Dosage: 1000CC
     Route: 042
     Dates: start: 20040421, end: 20040421
  10. HEPARIN [Concomitant]
     Dosage: 20000 UNITS
     Route: 042
     Dates: start: 20040421, end: 20040421
  11. METOPROLOL TARTRATE [Concomitant]
     Dosage: 50MG
     Route: 048
  12. INSULIN [Concomitant]
     Dosage: UNK
     Route: 042
     Dates: start: 20040421, end: 20040421
  13. WHOLE BLOOD [Concomitant]
     Dosage: 200ML
     Route: 042
     Dates: start: 20040421, end: 20040421
  14. MIDAZOLAM HCL [Concomitant]
     Dosage: UNK
     Route: 042
     Dates: start: 20040421, end: 20040421

REACTIONS (12)
  - MULTI-ORGAN FAILURE [None]
  - RENAL INJURY [None]
  - INJURY [None]
  - PSYCHIATRIC SYMPTOM [None]
  - PAIN [None]
  - UNEVALUABLE EVENT [None]
  - DISABILITY [None]
  - RENAL FAILURE [None]
  - ANXIETY [None]
  - DEPRESSION [None]
  - ANHEDONIA [None]
  - FEAR [None]
